FAERS Safety Report 25724350 (Version 1)
Quarter: 2025Q3

REPORT INFORMATION
  Report Type: Report from Study
  Country: BR (occurrence: BR)
  Receive Date: 20250826
  Receipt Date: 20250826
  Transmission Date: 20251020
  Serious: Yes (Other)
  Sender: JOHNSON AND JOHNSON
  Company Number: BR-JNJFOC-20250822513

PATIENT
  Age: 47 Year
  Sex: Female
  Weight: 92 kg

DRUGS (1)
  1. INFLIXIMAB [Suspect]
     Active Substance: INFLIXIMAB
     Indication: Psoriatic arthropathy
     Dosage: 6 VIALS. PATIENT FINDS 1 MONTH OR 30 DAYS
     Route: 041
     Dates: end: 2023

REACTIONS (8)
  - Cerebrovascular accident [Recovered/Resolved]
  - Pain [Recovering/Resolving]
  - Memory impairment [Unknown]
  - Fibromyalgia [Not Recovered/Not Resolved]
  - Vomiting [Unknown]
  - Herpes virus infection [Unknown]
  - Off label use [Unknown]
  - Drug ineffective [Unknown]

NARRATIVE: CASE EVENT DATE: 20230101
